FAERS Safety Report 17796232 (Version 1)
Quarter: 2020Q2

REPORT INFORMATION
  Report Type: Report from Study
  Country: AR (occurrence: AR)
  Receive Date: 20200517
  Receipt Date: 20200517
  Transmission Date: 20200714
  Serious: Yes (Death, Hospitalization)
  Sender: FDA-Public Use
  Company Number: NVSC2020AR066162

PATIENT
  Sex: Male

DRUGS (1)
  1. ENTRESTO [Suspect]
     Active Substance: SACUBITRIL\VALSARTAN
     Indication: CARDIAC FAILURE
     Dosage: 0.5 DF, BID (AT THE MORNING AND AT THE NIGHT)
     Route: 065

REACTIONS (3)
  - Death [Fatal]
  - Wrong technique in product usage process [Recovering/Resolving]
  - Urinary tract infection [Unknown]
